FAERS Safety Report 24543805 (Version 1)
Quarter: 2024Q4

REPORT INFORMATION
  Report Type: Spontaneous
  Country: US (occurrence: US)
  Receive Date: 20241024
  Receipt Date: 20241024
  Transmission Date: 20250115
  Serious: No
  Sender: TAKEDA
  Company Number: US-TAKEDA-2024TUS107098

PATIENT

DRUGS (1)
  1. TRINTELLIX [Suspect]
     Active Substance: VORTIOXETINE HYDROBROMIDE
     Indication: Depression
     Dosage: UNK UNK, QD
     Route: 065
     Dates: start: 202405

REACTIONS (3)
  - Asthenia [Unknown]
  - Abdominal discomfort [Unknown]
  - Dizziness [Unknown]
